FAERS Safety Report 9197662 (Version 1)
Quarter: 2013Q1

REPORT INFORMATION
  Report Type: Spontaneous
  Country: US (occurrence: US)
  Receive Date: 20130328
  Receipt Date: 20130328
  Transmission Date: 20140127
  Serious: Yes (Hospitalization, Other)
  Sender: FDA-Public Use
  Company Number: US-BAYER-2013-036869

PATIENT
  Age: 32 Year
  Sex: Female

DRUGS (3)
  1. YAZ [Suspect]
  2. YASMIN [Suspect]
  3. LEVAQUIN [Concomitant]
     Indication: LOBAR PNEUMONIA

REACTIONS (2)
  - Biliary dyskinesia [None]
  - Pulmonary embolism [Recovering/Resolving]
